FAERS Safety Report 4834190-3 (Version None)
Quarter: 2005Q4

REPORT INFORMATION
  Report Type: 
  Country: None (occurrence: None)
  Receive Date: 20051122
  Receipt Date: 20051118
  Transmission Date: 20060501
  Serious: Yes (Death)
  Sender: FDA-Public Use
  Company Number: 2005AP05983

PATIENT
  Age: 81 Year
  Sex: Female

DRUGS (3)
  1. OMEPRAL [Suspect]
     Indication: REFLUX OESOPHAGITIS
     Route: 048
     Dates: start: 20050718, end: 20051024
  2. LENDORMIN [Suspect]
     Route: 048
     Dates: start: 20050805
  3. GASTER [Concomitant]

REACTIONS (1)
  - INTERSTITIAL LUNG DISEASE [None]
